FAERS Safety Report 11454274 (Version 4)
Quarter: 2016Q3

REPORT INFORMATION
  Report Type: Spontaneous
  Country: DK (occurrence: DK)
  Receive Date: 20150903
  Receipt Date: 20160916
  Transmission Date: 20161109
  Serious: Yes (Disabling)
  Sender: FDA-Public Use
  Company Number: DK-PFIZER INC-2015281283

PATIENT
  Age: 53 Year
  Sex: Female

DRUGS (29)
  1. PRIMPERAN [Concomitant]
     Active Substance: METOCLOPRAMIDE HYDROCHLORIDE
     Dosage: 20 MG, 4X/DAY
     Dates: start: 20090812
  2. TAXOTERE [Suspect]
     Active Substance: DOCETAXEL
     Dosage: 150 MG, UNKNOWN DOSE, GIVEN OVER 60 MINUTES
     Route: 042
     Dates: start: 20091210, end: 20091210
  3. NEULASTA [Concomitant]
     Active Substance: PEGFILGRASTIM
     Dosage: 6 MG, 1X/DAY OVER 2 MINUTES
     Route: 058
     Dates: start: 20091113
  4. ZOFRAN [Concomitant]
     Active Substance: ONDANSETRON HYDROCHLORIDE
     Dosage: 8 MG, 2X/DAY
     Route: 048
     Dates: start: 20090902
  5. ZOFRAN [Concomitant]
     Active Substance: ONDANSETRON HYDROCHLORIDE
     Dosage: 8 MG, 2X/DAY
     Route: 048
     Dates: start: 20091210
  6. FARMORUBICIN [Suspect]
     Active Substance: EPIRUBICIN HYDROCHLORIDE
     Indication: BREAST CANCER
     Dosage: 180 MG, 1X/DAY, GIVEN OVER 15 MINUTES
     Route: 042
     Dates: start: 20090812, end: 20090812
  7. FARMORUBICIN [Suspect]
     Active Substance: EPIRUBICIN HYDROCHLORIDE
     Dosage: 180 MG, 1X/DAY, GIVEN OVER 15 MINUTES
     Route: 042
     Dates: start: 20090930, end: 20090930
  8. PRIMPERAN [Concomitant]
     Active Substance: METOCLOPRAMIDE HYDROCHLORIDE
     Dosage: 20 MG, 4X/DAY
     Dates: start: 20090902
  9. SENDOXAN [Suspect]
     Active Substance: CYCLOPHOSPHAMIDE
     Dosage: 1200 MG, 1X/DAY, GIVEN OVER 15 MINUTES
     Route: 042
     Dates: start: 20090930, end: 20090930
  10. TAXOTERE [Suspect]
     Active Substance: DOCETAXEL
     Dosage: 200 MG, UNK, GIVEN OVER 60 MINUTES
     Route: 042
     Dates: start: 20091113, end: 20091113
  11. TAXOTERE [Suspect]
     Active Substance: DOCETAXEL
     Dosage: DOSE UNKNOWN, GIVEN OVER 60 MINUTES
     Route: 042
     Dates: start: 20091120, end: 20091120
  12. NEULASTA [Concomitant]
     Active Substance: PEGFILGRASTIM
     Dosage: 6 MG, 1X/DAY OVER 2 MINUTES
     Route: 058
     Dates: start: 20091120
  13. PREDNISOLON /00016201/ [Concomitant]
     Active Substance: PREDNISOLONE
     Dosage: 50 MG, 1X/DAY
     Route: 048
     Dates: start: 20090902
  14. SENDOXAN [Suspect]
     Active Substance: CYCLOPHOSPHAMIDE
     Dosage: 1200 MG, 1X/DAY, GIVEN OVER 15 MINUTES
     Route: 042
     Dates: start: 20090902, end: 20090902
  15. ZOFRAN [Concomitant]
     Active Substance: ONDANSETRON HYDROCHLORIDE
     Dosage: 8 MG, 2X/DAY
     Route: 048
     Dates: start: 20090812
  16. PREDNISOLON /00016201/ [Concomitant]
     Active Substance: PREDNISOLONE
     Dosage: 50 MG, 1X/DAY
     Route: 048
     Dates: start: 20090812
  17. FARMORUBICIN [Suspect]
     Active Substance: EPIRUBICIN HYDROCHLORIDE
     Dosage: 180 MG, 1X/DAY, GIVEN OVER 15 MINUTES
     Route: 042
     Dates: start: 20090902, end: 20090902
  18. TAXOTERE [Suspect]
     Active Substance: DOCETAXEL
     Indication: BREAST CANCER
     Dosage: DOSE UNKNOWN, GIVEN OVER 60 MINUTES
     Route: 042
     Dates: start: 20091021, end: 20091021
  19. PRIMPERAN [Concomitant]
     Active Substance: METOCLOPRAMIDE HYDROCHLORIDE
     Dosage: 20 MG, 4X/DAY
     Dates: start: 20090930
  20. PRIMPERAN [Concomitant]
     Active Substance: METOCLOPRAMIDE HYDROCHLORIDE
     Dosage: 20 MG, 4X/DAY
     Dates: start: 20091021
  21. PRIMPERAN [Concomitant]
     Active Substance: METOCLOPRAMIDE HYDROCHLORIDE
     Dosage: 20 MG, 4X/DAY
     Dates: start: 20091210
  22. NEULASTA [Concomitant]
     Active Substance: PEGFILGRASTIM
     Dosage: 6 MG, 1X/DAY OVER 2 MINUTES
     Route: 058
     Dates: start: 20091210
  23. ZOFRAN [Concomitant]
     Active Substance: ONDANSETRON HYDROCHLORIDE
     Dosage: 8 MG, 2X/DAY
     Route: 048
     Dates: start: 20090930
  24. PREDNISOLON /00016201/ [Concomitant]
     Active Substance: PREDNISOLONE
     Dosage: 50 MG, 1X/DAY
     Route: 048
     Dates: start: 20090930
  25. PREDNISOLON /00016201/ [Concomitant]
     Active Substance: PREDNISOLONE
     Dosage: 50 MG, 1X/DAY
     Route: 048
     Dates: start: 20091021
  26. PREDNISOLON /00016201/ [Concomitant]
     Active Substance: PREDNISOLONE
     Dosage: 50 MG, 1X/DAY
     Route: 048
     Dates: start: 20091210
  27. SENDOXAN [Suspect]
     Active Substance: CYCLOPHOSPHAMIDE
     Indication: BREAST CANCER
     Dosage: 1200 MG, 1X/DAY, GIVEN OVER 15 MINUTES
     Route: 042
     Dates: start: 20090812, end: 20090812
  28. NEULASTA [Concomitant]
     Active Substance: PEGFILGRASTIM
     Dosage: 6 MG, 1X/DAY OVER 2 MINUTES
     Route: 058
     Dates: start: 20091021
  29. ZOFRAN [Concomitant]
     Active Substance: ONDANSETRON HYDROCHLORIDE
     Dosage: 8 MG, 2X/DAY
     Route: 048
     Dates: start: 20091021

REACTIONS (12)
  - Cognitive disorder [Not Recovered/Not Resolved]
  - Impaired work ability [Not Recovered/Not Resolved]
  - Skin exfoliation [Recovered/Resolved]
  - Sensory disturbance [Not Recovered/Not Resolved]
  - Onychomadesis [Recovered/Resolved]
  - Vomiting [Not Recovered/Not Resolved]
  - Constipation [Not Recovered/Not Resolved]
  - Muscle spasms [Not Recovered/Not Resolved]
  - Lymphoedema [Unknown]
  - Memory impairment [Not Recovered/Not Resolved]
  - Stress [Not Recovered/Not Resolved]
  - Disturbance in attention [Not Recovered/Not Resolved]

NARRATIVE: CASE EVENT DATE: 2009
